FAERS Safety Report 14945999 (Version 1)
Quarter: 2018Q2

REPORT INFORMATION
  Report Type: Spontaneous
  Country: US (occurrence: US)
  Receive Date: 20180508
  Receipt Date: 20180508
  Transmission Date: 20180711
  Serious: Yes (Other)
  Sender: FDA-Public Use
  Company Number: None

PATIENT
  Age: 8 Year
  Sex: Male

DRUGS (1)
  1. FEIBA [Suspect]
     Active Substance: ANTI-INHIBITOR COAGULANT COMPLEX
     Indication: FACTOR VIII DEFICIENCY
     Dosage: OTHER DOSE:1700-2000 UNITS;?
     Route: 042
     Dates: start: 20121117, end: 20180327

REACTIONS (2)
  - Headache [None]
  - Vomiting [None]

NARRATIVE: CASE EVENT DATE: 20180328
